FAERS Safety Report 6005580-0 (Version None)
Quarter: 2008Q4

REPORT INFORMATION
  Report Type: 
  Country: None (occurrence: None)
  Receive Date: 20081215
  Receipt Date: 20081210
  Transmission Date: 20090506
  Serious: Yes (Hospitalization)
  Sender: FDA-Public Use
  Company Number: 2008SP025136

PATIENT
  Age: 50 Year
  Sex: Female

DRUGS (1)
  1. CLARITIN [Suspect]
     Dosage: 10 MG; PO
     Route: 048

REACTIONS (2)
  - DRUG ERUPTION [None]
  - SKIN TEST POSITIVE [None]
